FAERS Safety Report 10598545 (Version 2)
Quarter: 2014Q4

REPORT INFORMATION
  Report Type: Spontaneous
  Country: US (occurrence: US)
  Receive Date: 20141121
  Receipt Date: 20141208
  Transmission Date: 20150529
  Serious: Yes (Death)
  Sender: FDA-Public Use
  Company Number: US-MERCK-1411USA009324

PATIENT
  Sex: Male

DRUGS (1)
  1. NOXAFIL [Suspect]
     Active Substance: POSACONAZOLE
     Dosage: 400 MG, TWICE A DAY
     Route: 048
     Dates: start: 201205

REACTIONS (1)
  - Death [Fatal]
